FAERS Safety Report 6142877-8 (Version None)
Quarter: 2009Q2

REPORT INFORMATION
  Report Type: 
  Country: None (occurrence: None)
  Receive Date: 20090403
  Receipt Date: 20090324
  Transmission Date: 20091009
  Serious: Yes (Hospitalization, Other)
  Sender: FDA-Public Use
  Company Number: DZ-PFIZER INC-2009173341

PATIENT

DRUGS (7)
  1. PREGABALIN [Suspect]
     Indication: NEURALGIA
     Dosage: 50 MG, 3X/DAY
     Route: 048
  2. ATORVASTATIN [Concomitant]
     Route: 048
  3. ECAZIDE [Concomitant]
  4. ASPEGIC 325 [Concomitant]
  5. APROVEL [Concomitant]
  6. GLUCOPHAGE [Concomitant]
  7. LOPRESSOR [Concomitant]

REACTIONS (2)
  - ARRHYTHMIA [None]
  - MALAISE [None]
